FAERS Safety Report 23220332 (Version 2)
Quarter: 2023Q4

REPORT INFORMATION
  Report Type: Report from Study
  Country: TW (occurrence: TW)
  Receive Date: 20231123
  Receipt Date: 20231206
  Transmission Date: 20240110
  Serious: Yes (Hospitalization)
  Sender: FDA-Public Use
  Company Number: TW-JNJFOC-20231143295

PATIENT
  Age: 60 Year
  Sex: Female
  Weight: 49.3 kg

DRUGS (14)
  1. DARZALEX [Suspect]
     Active Substance: DARATUMUMAB
     Indication: Plasma cell myeloma
     Dosage: 1 MONTH 22 DAYS
     Route: 058
     Dates: start: 20221213, end: 20230203
  2. DARZALEX [Suspect]
     Active Substance: DARATUMUMAB
     Dosage: 2 MONTHS 28 DAYS
     Route: 058
     Dates: start: 20230222, end: 20230519
  3. DARZALEX [Suspect]
     Active Substance: DARATUMUMAB
     Dosage: 4 MONTHS 18 DAYS
     Route: 058
     Dates: start: 20230614, end: 20231031
  4. ELRANATAMAB [Suspect]
     Active Substance: ELRANATAMAB
     Indication: Plasma cell myeloma
     Dosage: 1 DAY
     Route: 058
     Dates: start: 20221128, end: 20221128
  5. ELRANATAMAB [Suspect]
     Active Substance: ELRANATAMAB
     Route: 058
     Dates: start: 20221201, end: 20221201
  6. ELRANATAMAB [Suspect]
     Active Substance: ELRANATAMAB
     Dosage: 5 MONTHS 7 DAYS
     Route: 058
     Dates: start: 20221206, end: 20230512
  7. ELRANATAMAB [Suspect]
     Active Substance: ELRANATAMAB
     Dosage: 1 MONTH 29 DAYS
     Route: 058
     Dates: start: 20230519, end: 20230717
  8. ELRANATAMAB [Suspect]
     Active Substance: ELRANATAMAB
     Route: 058
     Dates: start: 20231031, end: 20231031
  9. ACETYLCYSTEINE [Concomitant]
     Active Substance: ACETYLCYSTEINE
     Indication: Rhinorrhoea
     Route: 048
     Dates: start: 20231031, end: 20231109
  10. ACETYLCYSTEINE [Concomitant]
     Active Substance: ACETYLCYSTEINE
     Indication: Rhinitis allergic
  11. LOPERAMIDE [Concomitant]
     Active Substance: LOPERAMIDE
     Indication: Diarrhoea
     Route: 048
     Dates: start: 20231031
  12. MOMETASONE FUROATE [Concomitant]
     Active Substance: MOMETASONE FUROATE
     Indication: Rhinitis allergic
     Route: 045
     Dates: start: 20231031
  13. LACTOBACILLUS CASEI [Concomitant]
     Active Substance: LACTOBACILLUS CASEI
     Indication: Diarrhoea
     Route: 048
     Dates: start: 20231017
  14. CEFEPIME [Concomitant]
     Active Substance: CEFEPIME HYDROCHLORIDE
     Indication: Infection prophylaxis
     Route: 042
     Dates: start: 20231109, end: 20231117

REACTIONS (1)
  - Febrile neutropenia [Recovered/Resolved]

NARRATIVE: CASE EVENT DATE: 20231109
